FAERS Safety Report 25171442 (Version 2)
Quarter: 2025Q3

REPORT INFORMATION
  Report Type: Spontaneous
  Country: CA (occurrence: CA)
  Receive Date: 20250408
  Receipt Date: 20250916
  Transmission Date: 20251020
  Serious: Yes (Other)
  Sender: CELLTRION
  Company Number: CA-CELLTRION INC.-2024CA028029

PATIENT

DRUGS (2)
  1. YUFLYMA [Suspect]
     Active Substance: ADALIMUMAB-AATY
     Indication: Hidradenitis
     Dosage: YUFLYMA 40MG SC Q WEEKLY / 1 EVERY 1 WEEK
     Route: 058
     Dates: start: 20241004
  2. YUFLYMA [Suspect]
     Active Substance: ADALIMUMAB-AATY
     Dosage: MAINTENANCE - 80 MG - EVERY 7 DAYS / 1 EVERY 1 WEEK
     Route: 058
     Dates: start: 20241004

REACTIONS (6)
  - Hidradenitis [Unknown]
  - Product supply issue [Unknown]
  - Product dose omission issue [Unknown]
  - Product prescribing issue [Unknown]
  - Off label use [Unknown]
  - Drug ineffective [Unknown]
